FAERS Safety Report 9438160 (Version 1)
Quarter: 2013Q3

REPORT INFORMATION
  Report Type: Spontaneous
  Country: US (occurrence: US)
  Receive Date: 20130802
  Receipt Date: 20130802
  Transmission Date: 20140515
  Serious: No
  Sender: FDA-Public Use
  Company Number: US-BRISTOL-MYERS SQUIBB COMPANY-16936387

PATIENT
  Age: 51 Year
  Sex: Female
  Weight: 68.03 kg

DRUGS (4)
  1. COUMADIN [Suspect]
     Indication: THROMBOSIS
     Dosage: 5 MG
     Dates: start: 201208
  2. LANTUS [Suspect]
     Indication: DIABETES MELLITUS
     Dosage: INJ,DOSE:9-11 IU DAILY
     Route: 058
  3. PRAVASTATINE [Concomitant]
     Indication: BLOOD CHOLESTEROL ABNORMAL
  4. OXYCONTIN [Concomitant]

REACTIONS (7)
  - Hyperhidrosis [Unknown]
  - Dehydration [Unknown]
  - Myalgia [Unknown]
  - Fatigue [Unknown]
  - Vomiting [Unknown]
  - Visual impairment [Unknown]
  - Speech disorder [Unknown]
